FAERS Safety Report 9234146 (Version 1)
Quarter: 2013Q2

REPORT INFORMATION
  Report Type: Spontaneous
  Country: US (occurrence: US)
  Receive Date: 20130416
  Receipt Date: 20130416
  Transmission Date: 20140414
  Serious: Yes (Hospitalization, Other)
  Sender: FDA-Public Use
  Company Number: US-ELI_LILLY_AND_COMPANY-US201304002642

PATIENT
  Sex: Male

DRUGS (17)
  1. HUMULIN REGULAR [Suspect]
     Dosage: UNK
  2. LEXIVA [Concomitant]
     Indication: HIV INFECTION
     Dosage: 1400 MG, BID
     Route: 048
  3. ISENTRESS [Concomitant]
  4. METOPROLOL [Concomitant]
  5. LISINOPRIL [Concomitant]
  6. VALTREX [Concomitant]
  7. ASPIRIN [Concomitant]
  8. OXYCODONE [Concomitant]
  9. TRAMADOL [Concomitant]
  10. GABAPENTIN [Concomitant]
  11. NEXIUM [Concomitant]
  12. LOVAZA [Concomitant]
  13. DIAZEPAM [Concomitant]
  14. GEMFIBROZIL [Concomitant]
  15. LOMOTIL [Concomitant]
  16. FIBER [Concomitant]
  17. MULTIVITAMIN [Concomitant]

REACTIONS (5)
  - Pancreatitis [Recovered/Resolved]
  - Water intoxication [Recovered/Resolved]
  - Lipoma [Not Recovered/Not Resolved]
  - Diabetes mellitus [Not Recovered/Not Resolved]
  - Weight increased [Unknown]
